FAERS Safety Report 5695087-2 (Version None)
Quarter: 2008Q2

REPORT INFORMATION
  Report Type: 
  Country: None (occurrence: None)
  Receive Date: 20080404
  Receipt Date: 20080401
  Transmission Date: 20081010
  Serious: Yes (Other)
  Sender: FDA-Public Use
  Company Number: JP-BRISTOL-MYERS SQUIBB COMPANY-14116420

PATIENT
  Age: 52 Year
  Sex: Female

DRUGS (2)
  1. TAXOL [Suspect]
     Indication: VAGINAL CANCER
     Route: 041
  2. PARAPLATIN [Suspect]
     Indication: VAGINAL CANCER
     Route: 041

REACTIONS (4)
  - DERMATOMYOSITIS [None]
  - DRUG INEFFECTIVE [None]
  - GENERALISED OEDEMA [None]
  - RHABDOMYOLYSIS [None]
